FAERS Safety Report 20829763 (Version 1)
Quarter: 2022Q2

REPORT INFORMATION
  Report Type: Other
  Country: DE (occurrence: DE)
  Receive Date: 20220513
  Receipt Date: 20220513
  Transmission Date: 20220720
  Serious: Yes (Death)
  Sender: FDA-Public Use
  Company Number: None

PATIENT
  Age: 81 Year
  Sex: Male
  Weight: 80 kg

DRUGS (10)
  1. IOHEXOL [Suspect]
     Active Substance: IOHEXOL
     Indication: Angiocardiogram
     Dosage: 180 ML, SINGLE
     Route: 065
  2. IOHEXOL [Suspect]
     Active Substance: IOHEXOL
     Indication: Percutaneous coronary intervention
  3. IOHEXOL [Suspect]
     Active Substance: IOHEXOL
     Indication: Stent placement
  4. IOHEXOL [Suspect]
     Active Substance: IOHEXOL
     Indication: Coronary artery disease
  5. IOHEXOL [Suspect]
     Active Substance: IOHEXOL
     Indication: Acute coronary syndrome
  6. HEPARIN [Concomitant]
     Active Substance: HEPARIN SODIUM
  7. NITROGLYCERIN [Concomitant]
     Active Substance: NITROGLYCERIN
  8. ASPIRIN [Concomitant]
     Active Substance: ASPIRIN
  9. ULTRAVIST [Concomitant]
     Active Substance: IOPROMIDE
     Indication: Angiogram
  10. ULTRAVIST [Concomitant]
     Active Substance: IOPROMIDE
     Indication: Aortic dissection

REACTIONS (3)
  - Coagulopathy [Fatal]
  - Multiple organ dysfunction syndrome [Fatal]
  - Anaphylactic shock [Fatal]

NARRATIVE: CASE EVENT DATE: 20210910
